FAERS Safety Report 15994721 (Version 1)
Quarter: 2019Q1

REPORT INFORMATION
  Report Type: Spontaneous
  Country: US (occurrence: US)
  Receive Date: 20190221
  Receipt Date: 20190221
  Transmission Date: 20190418
  Serious: Yes (Hospitalization)
  Sender: FDA-Public Use
  Company Number: None

PATIENT
  Age: 91 Year
  Sex: Female
  Weight: 67.5 kg

DRUGS (1)
  1. LEVAQUIN [Suspect]
     Active Substance: LEVOFLOXACIN
     Indication: PLEURAL EFFUSION
     Dosage: ?          QUANTITY:1 TABLET(S);?
     Route: 048
     Dates: start: 20190208, end: 20190211

REACTIONS (7)
  - Paraesthesia [None]
  - Confusional state [None]
  - Dementia [None]
  - Vomiting [None]
  - Generalised tonic-clonic seizure [None]
  - Tremor [None]
  - Amnesia [None]

NARRATIVE: CASE EVENT DATE: 20190211
